FAERS Safety Report 20351665 (Version 1)
Quarter: 2022Q1

REPORT INFORMATION
  Report Type: Spontaneous
  Country: IN (occurrence: IN)
  Receive Date: 20220119
  Receipt Date: 20220119
  Transmission Date: 20220423
  Serious: Yes (Other)
  Sender: FDA-Public Use
  Company Number: IN-ANIPHARMA-2022-IN-000008

PATIENT
  Age: 13 Year
  Sex: Female

DRUGS (3)
  1. CIPROFLOXACIN [Suspect]
     Active Substance: CIPROFLOXACIN
     Indication: Renal abscess
     Route: 065
  2. CYCLOSPORINE [Suspect]
     Active Substance: CYCLOSPORINE
     Route: 065
  3. LINEZOLID [Concomitant]
     Active Substance: LINEZOLID
     Route: 065

REACTIONS (6)
  - Leukoencephalopathy [Unknown]
  - Acute kidney injury [Unknown]
  - Hemiparesis [Recovered/Resolved]
  - Multiple organ dysfunction syndrome [Unknown]
  - Toxicity to various agents [Unknown]
  - Drug interaction [Unknown]
